FAERS Safety Report 9438315 (Version 1)
Quarter: 2013Q3

REPORT INFORMATION
  Report Type: Spontaneous
  Country: US (occurrence: US)
  Receive Date: 20130802
  Receipt Date: 20130802
  Transmission Date: 20140515
  Serious: No
  Sender: FDA-Public Use
  Company Number: US-BRISTOL-MYERS SQUIBB COMPANY-17136417

PATIENT
  Sex: Female

DRUGS (4)
  1. WARFARIN SODIUM [Suspect]
  2. SYNTHROID [Concomitant]
  3. ADVAIR [Concomitant]
  4. VITAMINS [Concomitant]

REACTIONS (1)
  - Rash generalised [Recovered/Resolved]
